FAERS Safety Report 5216777-1 (Version None)
Quarter: 2007Q1

REPORT INFORMATION
  Report Type: 
  Country: None (occurrence: None)
  Receive Date: 20070118
  Receipt Date: 20070110
  Transmission Date: 20070707
  Serious: Yes (Hospitalization)
  Sender: FDA-Public Use
  Company Number: 2006SP005933

PATIENT
  Age: 48 Year
  Sex: Male
  Weight: 88.5 kg

DRUGS (6)
  1. PEGATRON (PEGYLATED INTERFERON ALFA-2B W/ RIBAVIRIN) [Suspect]
     Indication: HEPATITIS C
     Dosage: SEE IMAGE
     Dates: start: 20060519, end: 20061103
  2. PEGATRON (PEGYLATED INTERFERON ALFA-2B W/ RIBAVIRIN) [Suspect]
     Indication: HEPATITIS C
     Dosage: SEE IMAGE
     Dates: start: 20060519, end: 20061109
  3. SERTRALINE [Suspect]
     Indication: DEPRESSION
     Dosage: 50 MG; QD; PO
     Route: 048
     Dates: start: 20060601
  4. PANADOL [Concomitant]
  5. PARIET [Concomitant]
  6. TEMAZEPAM [Concomitant]

REACTIONS (2)
  - ECZEMA [None]
  - PRURITUS [None]
